FAERS Safety Report 17860665 (Version 1)
Quarter: 2020Q2

REPORT INFORMATION
  Report Type: Spontaneous
  Country: US (occurrence: US)
  Receive Date: 20200604
  Receipt Date: 20200604
  Transmission Date: 20200714
  Serious: No
  Sender: FDA-Public Use
  Company Number: US-SA-2020SA141866

PATIENT

DRUGS (1)
  1. SOLIQUA 100/33 [Suspect]
     Active Substance: INSULIN GLARGINE\LIXISENATIDE
     Indication: TYPE 2 DIABETES MELLITUS
     Dosage: 33 IU, QD (MORNING)
     Route: 065

REACTIONS (4)
  - Product dose omission [Unknown]
  - Product quality issue [Unknown]
  - Product odour abnormal [Unknown]
  - Liquid product physical issue [Unknown]
